FAERS Safety Report 10044634 (Version 2)
Quarter: 2014Q2

REPORT INFORMATION
  Report Type: Spontaneous
  Country: US (occurrence: US)
  Receive Date: 20140328
  Receipt Date: 20140409
  Transmission Date: 20141212
  Serious: Yes (Other)
  Sender: FDA-Public Use
  Company Number: US-ACTELION-A-NJ2014-96456

PATIENT
  Age: 40 Year
  Sex: Male

DRUGS (5)
  1. TRACLEER [Suspect]
     Indication: PULMONARY ARTERIAL HYPERTENSION
     Dosage: UNK
     Route: 048
     Dates: start: 2010
  2. COUMADIN [Suspect]
  3. ADCIRCA [Concomitant]
  4. TYVASO [Concomitant]
  5. REMODULIN [Concomitant]

REACTIONS (1)
  - Catheter site haemorrhage [Recovered/Resolved]
